FAERS Safety Report 10986027 (Version 1)
Quarter: 2015Q1

REPORT INFORMATION
  Report Type: Spontaneous
  Country: US (occurrence: None)
  Receive Date: 20150309
  Receipt Date: 20150309
  Transmission Date: 20150721
  Serious: Yes (Hospitalization)
  Sender: FDA-Public Use
  Company Number: HYP201412-000092

PATIENT
  Age: 4 Year
  Sex: Male

DRUGS (6)
  1. L-ARGININE [Concomitant]
     Active Substance: ARGININE
  2. ZOFRAN [Concomitant]
     Active Substance: ONDANSETRON HYDROCHLORIDE
  3. RAVICTI [Suspect]
     Active Substance: GLYCEROL PHENYLBUTYRATE
     Indication: UREA CYCLE ENZYME DEFICIENCY
     Dates: start: 201304
  4. RANITIDINE [Concomitant]
     Active Substance: RANITIDINE\RANITIDINE HYDROCHLORIDE
  5. FERROUS SULFATE [Concomitant]
     Active Substance: FERROUS SULFATE\FERROUS SULFATE, DRIED
  6. LACTULOSE. [Concomitant]
     Active Substance: LACTULOSE

REACTIONS (6)
  - Hyperammonaemic crisis [None]
  - Viral infection [None]
  - Vomiting [None]
  - Rhinorrhoea [None]
  - Cough [None]
  - Somnolence [None]

NARRATIVE: CASE EVENT DATE: 20141130
